FAERS Safety Report 5254910-6 (Version None)
Quarter: 2007Q1

REPORT INFORMATION
  Report Type: 
  Country: None (occurrence: None)
  Receive Date: 20070302
  Receipt Date: 20070302
  Transmission Date: 20070707
  Serious: Yes (Other)
  Sender: FDA-Public Use
  Company Number: None

PATIENT
  Age: 49 Year
  Sex: Female
  Weight: 53.5244 kg

DRUGS (1)
  1. PHENYTOIN [Suspect]

REACTIONS (2)
  - HEPATIC ENZYME INCREASED [None]
  - HEPATOTOXICITY [None]
